FAERS Safety Report 7126508-6 (Version None)
Quarter: 2010Q4

REPORT INFORMATION
  Report Type: 
  Country: None (occurrence: None)
  Receive Date: 20101129
  Receipt Date: 20101117
  Transmission Date: 20110411
  Serious: Yes (Hospitalization, Other)
  Sender: FDA-Public Use
  Company Number: BR-PFIZER INC-2010150500

PATIENT
  Age: 62 Year
  Sex: Male
  Weight: 78 kg

DRUGS (7)
  1. XALATAN [Suspect]
     Indication: GLAUCOMA
     Dosage: 1 DROP IN EACH EYE
     Route: 047
  2. XALATAN [Suspect]
     Dosage: UNK
     Route: 047
  3. ATENOLOL [Concomitant]
     Indication: CARDIAC DISORDER
     Dosage: UNK
  4. LOSARTAN POTASSIUM AND HYDROCHLOROTHIAZIDE [Concomitant]
     Indication: HYPERTENSION
     Dosage: UNK
  5. ASPIRIN [Concomitant]
     Dosage: UNK
  6. PURAN T4 [Concomitant]
     Indication: AUTOIMMUNE THYROIDITIS
  7. OLCADIL [Concomitant]
     Indication: RELAXATION THERAPY
     Dosage: UNK

REACTIONS (4)
  - DEPRESSION [None]
  - DRUG NAME CONFUSION [None]
  - OESOPHAGEAL DISORDER [None]
  - WRONG DRUG ADMINISTERED [None]
